FAERS Safety Report 16756231 (Version 4)
Quarter: 2023Q1

REPORT INFORMATION
  Report Type: Spontaneous
  Country: PT (occurrence: PT)
  Receive Date: 20190829
  Receipt Date: 20230329
  Transmission Date: 20230418
  Serious: Yes (Death, Hospitalization, Other)
  Sender: FDA-Public Use
  Company Number: PT-BLUEFISH PHARMACEUTICALS AB-2019BF000820

PATIENT
  Age: 6 Year
  Sex: Male

DRUGS (13)
  1. LEVOFLOXACIN [Suspect]
     Active Substance: LEVOFLOXACIN
     Indication: Prophylaxis
     Dosage: UNK
     Route: 065
  2. TEICOPLANIN [Suspect]
     Active Substance: TEICOPLANIN
     Indication: Product used for unknown indication
     Dosage: UNK
     Route: 065
     Dates: start: 201704
  3. VANCOMYCIN [Suspect]
     Active Substance: VANCOMYCIN
     Indication: Product used for unknown indication
     Dosage: UNK
     Route: 065
     Dates: start: 201704
  4. CYTARABINE [Suspect]
     Active Substance: CYTARABINE
     Indication: Acute myeloid leukaemia
     Dosage: UNK
     Route: 065
  5. CYTARABINE [Suspect]
     Active Substance: CYTARABINE
     Indication: Chemotherapy
  6. VORICONAZOLE [Suspect]
     Active Substance: VORICONAZOLE
     Indication: Product used for unknown indication
     Dosage: UNK
     Route: 065
     Dates: start: 201704
  7. FLUDARABINE [Suspect]
     Active Substance: FLUDARABINE PHOSPHATE
     Indication: Acute myeloid leukaemia
     Dosage: UNK
     Route: 065
  8. FLUDARABINE [Suspect]
     Active Substance: FLUDARABINE PHOSPHATE
     Indication: Chemotherapy
  9. MICAFUNGIN [Suspect]
     Active Substance: MICAFUNGIN
     Indication: Prophylaxis
     Dosage: 4 MG/KG, QD, ONCE DAILY (65 MG)
     Route: 042
     Dates: start: 20170410
  10. METRONIDAZOLE [Suspect]
     Active Substance: METRONIDAZOLE
     Indication: Appendicitis
     Dosage: UNK
     Route: 065
  11. MEROPENEM [Suspect]
     Active Substance: MEROPENEM
     Indication: Appendicitis
     Dosage: UNK
     Route: 065
     Dates: start: 201704
  12. COTRIMOXAZOLE [Suspect]
     Active Substance: SULFAMETHOXAZOLE\TRIMETHOPRIM
     Indication: Product used for unknown indication
     Dosage: UNK
     Route: 065
     Dates: start: 201704
  13. AMPHOTERICIN B [Suspect]
     Active Substance: AMPHOTERICIN B
     Indication: Product used for unknown indication
     Dosage: UNK
     Route: 065
     Dates: start: 201704

REACTIONS (9)
  - Condition aggravated [Fatal]
  - Multiple organ dysfunction syndrome [Fatal]
  - Appendicitis [Fatal]
  - Geotrichum infection [Fatal]
  - Infection in an immunocompromised host [Fatal]
  - Contraindicated product administered [Unknown]
  - Product use in unapproved indication [Unknown]
  - Product use issue [Unknown]
  - Drug ineffective [Unknown]
